FAERS Safety Report 26044038 (Version 1)
Quarter: 2025Q4

REPORT INFORMATION
  Report Type: Spontaneous
  Country: EU (occurrence: EU)
  Receive Date: 20251114
  Receipt Date: 20251114
  Transmission Date: 20260117
  Serious: Yes (Other)
  Sender: ROCHE
  Company Number: None

PATIENT
  Age: 58 Year
  Sex: Female

DRUGS (5)
  1. OCREVUS [Suspect]
     Active Substance: OCRELIZUMAB
     Indication: Multiple sclerosis
     Route: 042
  2. AZITHROMYCIN [Suspect]
     Active Substance: AZITHROMYCIN
     Indication: Bronchiectasis
     Dosage: 500 MG AL GIORNO PER 6 GIORNI
     Route: 048
     Dates: start: 20251005, end: 20251010
  3. BISOPROLOL FUMARATE [Concomitant]
     Active Substance: BISOPROLOL FUMARATE
     Indication: Cardiac failure
     Dosage: CARDICOR 2.5 MG 1/2 CPR DIE
     Route: 048
  4. LEVOTHYROXINE SODIUM [Concomitant]
     Active Substance: LEVOTHYROXINE SODIUM
     Indication: Hypothyroidism
     Dosage: EUTIROX 100 MG DIE.
     Route: 048
  5. VALSARTAN [Concomitant]
     Active Substance: VALSARTAN
     Indication: Hypertension
     Dosage: TAREG 80 MG DIE.
     Route: 048

REACTIONS (1)
  - Agranulocytosis [Recovered/Resolved]

NARRATIVE: CASE EVENT DATE: 20251013
